FAERS Safety Report 8408490-4 (Version None)
Quarter: 2012Q2

REPORT INFORMATION
  Report Type: 
  Country: None (occurrence: None)
  Receive Date: 20120604
  Receipt Date: 20120521
  Transmission Date: 20120825
  Serious: No
  Sender: FDA-Public Use
  Company Number: US-ASTRAZENECA-2012SE21261

PATIENT
  Age: 58 Year
  Sex: Male

DRUGS (4)
  1. OXYCONTIN [Concomitant]
  2. NEXIUM [Suspect]
     Route: 048
  3. AVENZA [Concomitant]
  4. PERCOCET [Concomitant]

REACTIONS (4)
  - ACTIVITIES OF DAILY LIVING IMPAIRED [None]
  - MALAISE [None]
  - DRUG DOSE OMISSION [None]
  - GASTROOESOPHAGEAL REFLUX DISEASE [None]
